FAERS Safety Report 4806331-5 (Version None)
Quarter: 2005Q4

REPORT INFORMATION
  Report Type: 
  Country: None (occurrence: None)
  Receive Date: 20051021
  Receipt Date: 20051011
  Transmission Date: 20060501
  Serious: Yes (Life-Threatening)
  Sender: FDA-Public Use
  Company Number: JP-ROCHE-420592

PATIENT
  Age: 87 Year
  Sex: Female

DRUGS (5)
  1. NICARDIPINE HCL [Suspect]
     Indication: BLOOD PRESSURE INCREASED
     Route: 042
  2. HYDROXYZINE HYDROCHLORIDE [Suspect]
     Indication: BLOOD PRESSURE INCREASED
     Route: 042
  3. LIDOCAINE [Suspect]
     Indication: EPIDURAL ANAESTHESIA
     Route: 065
  4. BUPIVACAINE [Concomitant]
     Indication: SPINAL ANAESTHESIA
  5. ATROPINE [Concomitant]
     Indication: BRADYCARDIA
     Route: 042

REACTIONS (3)
  - ANAESTHETIC COMPLICATION [None]
  - BRADYCARDIA [None]
  - CARDIAC ARREST [None]
